FAERS Safety Report 23352626 (Version 5)
Quarter: 2025Q1

REPORT INFORMATION
  Report Type: Spontaneous
  Country: JP (occurrence: JP)
  Receive Date: 20231230
  Receipt Date: 20250228
  Transmission Date: 20250408
  Serious: Yes (Other)
  Sender: UNITED THERAPEUTICS
  Company Number: JP-UNITED THERAPEUTICS-UNT-2023-037145

PATIENT
  Sex: Female
  Weight: 8 kg

DRUGS (26)
  1. UNITUXIN [Suspect]
     Active Substance: DINUTUXIMAB
     Indication: Neuroblastoma
     Route: 041
  2. UNITUXIN [Suspect]
     Active Substance: DINUTUXIMAB
     Route: 041
  3. UNITUXIN [Suspect]
     Active Substance: DINUTUXIMAB
     Route: 041
     Dates: start: 20240115, end: 20240118
  4. UNITUXIN [Suspect]
     Active Substance: DINUTUXIMAB
     Route: 041
     Dates: start: 20240220, end: 20240223
  5. UNITUXIN [Suspect]
     Active Substance: DINUTUXIMAB
     Route: 041
     Dates: start: 20240318, end: 20240321
  6. UNITUXIN [Suspect]
     Active Substance: DINUTUXIMAB
     Route: 041
     Dates: start: 20240422, end: 20240425
  7. TECELEUKIN [Suspect]
     Active Substance: TECELEUKIN
     Indication: Neuroblastoma
     Route: 041
  8. TECELEUKIN [Suspect]
     Active Substance: TECELEUKIN
     Route: 041
     Dates: start: 20231120, end: 20231123
  9. TECELEUKIN [Suspect]
     Active Substance: TECELEUKIN
     Route: 041
     Dates: start: 20231127, end: 20231130
  10. TECELEUKIN [Suspect]
     Active Substance: TECELEUKIN
     Route: 041
  11. TECELEUKIN [Suspect]
     Active Substance: TECELEUKIN
     Route: 041
  12. TECELEUKIN [Suspect]
     Active Substance: TECELEUKIN
     Route: 041
  13. TECELEUKIN [Suspect]
     Active Substance: TECELEUKIN
     Route: 041
  14. FILGRASTIM [Suspect]
     Active Substance: FILGRASTIM
     Indication: Neuroblastoma
  15. FILGRASTIM [Suspect]
     Active Substance: FILGRASTIM
  16. FILGRASTIM [Suspect]
     Active Substance: FILGRASTIM
  17. FILGRASTIM [Suspect]
     Active Substance: FILGRASTIM
  18. ENALAPRIL MALEATE [Concomitant]
     Active Substance: ENALAPRIL MALEATE
     Indication: Cardiac dysfunction
     Dosage: 0.325 MG, QD [PER DAY]
     Dates: start: 20231011
  19. SULFAMETHOXAZOLE\TRIMETHOPRIM [Concomitant]
     Active Substance: SULFAMETHOXAZOLE\TRIMETHOPRIM
     Indication: Prophylaxis
     Dosage: 0.4 GRAM, QD (PER DAY)
     Dates: start: 20240526
  20. FUROSEMIDE [Concomitant]
     Active Substance: FUROSEMIDE
     Indication: Cardiac dysfunction
     Dosage: 8 MG, QD (PER DAY)
     Dates: start: 20231002, end: 20240530
  21. SPIRONOLACTONE [Concomitant]
     Active Substance: SPIRONOLACTONE
     Indication: Cardiac dysfunction
     Dosage: 16 MG, QD (PER DAY)
     Dates: start: 20231002, end: 20240530
  22. FENTANYL [Concomitant]
     Active Substance: FENTANYL
     Indication: Pain
     Dosage: 288 ?G, QD (PER DAY)
     Route: 041
     Dates: start: 20231127, end: 20231201
  23. HYDROXYZINE HYDROCHLORIDE [Concomitant]
     Active Substance: HYDROXYZINE HYDROCHLORIDE
     Indication: Infusion related reaction
     Dosage: 32 MG, QD (PER DAY)
     Route: 041
     Dates: start: 20231127, end: 20231201
  24. ACETAMINOPHEN [Concomitant]
     Active Substance: ACETAMINOPHEN
     Indication: Infusion related reaction
     Dosage: 320 MG, QD (PER DAY)
     Route: 041
     Dates: start: 20231127, end: 20231201
  25. MENATETRENONE [Concomitant]
     Active Substance: MENATETRENONE
     Indication: Abnormal clotting factor
     Dosage: 5 MG, QD (PER DAY)
     Dates: start: 20231129, end: 20231201
  26. CEFOZOPRAN HYDROCHLORIDE [Concomitant]
     Active Substance: CEFOZOPRAN HYDROCHLORIDE
     Indication: Bacterial infection
     Dosage: 1280 MG, QD (PER DAY)
     Dates: start: 20231127, end: 20231204

REACTIONS (14)
  - Cardiac dysfunction [Recovered/Resolved]
  - Eosinophil count increased [Recovering/Resolving]
  - Wrong technique in product usage process [Unknown]
  - Oedema [Recovering/Resolving]
  - Urticaria [Unknown]
  - Pyrexia [Unknown]
  - Coagulopathy [Unknown]
  - Pain [Unknown]
  - Bacterial infection [Unknown]
  - Blood creatinine increased [Unknown]
  - Gait disturbance [Unknown]
  - Left ventricular hypertrophy [Unknown]
  - Fatigue [Recovering/Resolving]
  - White blood cell count increased [Recovering/Resolving]

NARRATIVE: CASE EVENT DATE: 20230101
